FAERS Safety Report 7409029-2 (Version None)
Quarter: 2011Q2

REPORT INFORMATION
  Report Type: 
  Country: None (occurrence: None)
  Receive Date: 20110412
  Receipt Date: 20110329
  Transmission Date: 20111010
  Serious: Yes (Other)
  Sender: FDA-Public Use
  Company Number: PHHY2011DK27655

PATIENT
  Sex: Female

DRUGS (2)
  1. METRONIDAZOLE [Concomitant]
     Indication: PERIODONTITIS
     Route: 048
     Dates: start: 20100926, end: 20101006
  2. AMOXICILLIN [Suspect]
     Indication: PERIODONTITIS
     Dosage: 500 MG, TID
     Route: 048
     Dates: start: 20100926, end: 20100930

REACTIONS (5)
  - LOSS OF CONSCIOUSNESS [None]
  - OEDEMA PERIPHERAL [None]
  - PARESIS [None]
  - HEADACHE [None]
  - DIZZINESS [None]
